FAERS Safety Report 15164185 (Version 3)
Quarter: 2019Q2

REPORT INFORMATION
  Report Type: Spontaneous
  Country: US (occurrence: US)
  Receive Date: 20180719
  Receipt Date: 20190506
  Transmission Date: 20190711
  Serious: Yes (Other)
  Sender: FDA-Public Use
  Company Number: US-ASTRAZENECA-2018SE91152

PATIENT
  Age: 22675 Day
  Sex: Male
  Weight: 72.6 kg

DRUGS (29)
  1. NEXIUM [Suspect]
     Active Substance: ESOMEPRAZOLE MAGNESIUM
     Indication: GASTROOESOPHAGEAL REFLUX DISEASE
     Route: 048
     Dates: start: 1990, end: 2018
  2. NEXIUM [Suspect]
     Active Substance: ESOMEPRAZOLE MAGNESIUM
     Indication: GASTROOESOPHAGEAL REFLUX DISEASE
     Dosage: 40.0MG UNKNOWN
     Route: 048
     Dates: start: 20080315
  3. NEXIUM [Suspect]
     Active Substance: ESOMEPRAZOLE MAGNESIUM
     Indication: GASTROOESOPHAGEAL REFLUX DISEASE
     Dosage: 40.0MG UNKNOWN
     Route: 048
     Dates: start: 2008, end: 2018
  4. CLONAZEPAM. [Concomitant]
     Active Substance: CLONAZEPAM
  5. CELECOXIB. [Concomitant]
     Active Substance: CELECOXIB
  6. NEXIUM [Suspect]
     Active Substance: ESOMEPRAZOLE MAGNESIUM
     Indication: GASTROOESOPHAGEAL REFLUX DISEASE
     Dosage: 40.0MG UNKNOWN
     Route: 048
     Dates: start: 20110303
  7. GABAPENTIN. [Concomitant]
     Active Substance: GABAPENTIN
  8. METOPROLOL. [Concomitant]
     Active Substance: METOPROLOL
  9. TIZANIDINE. [Concomitant]
     Active Substance: TIZANIDINE
  10. CELEBREX [Concomitant]
     Active Substance: CELECOXIB
  11. CYMBALTA [Concomitant]
     Active Substance: DULOXETINE HYDROCHLORIDE
  12. VITAMIN D3 [Concomitant]
     Active Substance: CHOLECALCIFEROL
  13. FENTANYL. [Concomitant]
     Active Substance: FENTANYL
  14. METRONIDAZOLE. [Concomitant]
     Active Substance: METRONIDAZOLE
  15. AMOXICILLIN. [Concomitant]
     Active Substance: AMOXICILLIN
  16. GABAPENTIN. [Concomitant]
     Active Substance: GABAPENTIN
  17. METOPROLOL. [Concomitant]
     Active Substance: METOPROLOL
  18. TRIAMTERENE. [Concomitant]
     Active Substance: TRIAMTERENE
  19. NYSTATIN. [Concomitant]
     Active Substance: NYSTATIN
  20. FUROSEMIDE. [Concomitant]
     Active Substance: FUROSEMIDE
  21. PROMETHAZINE [Concomitant]
     Active Substance: PROMETHAZINE\PROMETHAZINE HYDROCHLORIDE
  22. TRIAMTERENE-HIDROCHOLORTHIAZIDE [Concomitant]
  23. NEXIUM [Suspect]
     Active Substance: ESOMEPRAZOLE MAGNESIUM
     Indication: GASTROOESOPHAGEAL REFLUX DISEASE
     Dosage: GENERIC40.0MG UNKNOWN
     Route: 048
     Dates: start: 2015
  24. ANDROGEL [Concomitant]
     Active Substance: TESTOSTERONE
  25. MULTIVITAMINS [Concomitant]
     Active Substance: VITAMINS
  26. PRILOSEC [Suspect]
     Active Substance: OMEPRAZOLE MAGNESIUM
     Route: 048
     Dates: start: 1990, end: 2018
  27. PREVACID [Suspect]
     Active Substance: LANSOPRAZOLE
     Route: 065
     Dates: start: 1990, end: 2018
  28. AMITRIPTYLINE [Concomitant]
     Active Substance: AMITRIPTYLINE
  29. TIZANIDINE. [Concomitant]
     Active Substance: TIZANIDINE

REACTIONS (2)
  - Chronic kidney disease [Unknown]
  - Chronic kidney disease-mineral and bone disorder [Unknown]

NARRATIVE: CASE EVENT DATE: 20151001
